FAERS Safety Report 25952212 (Version 1)
Quarter: 2025Q4

REPORT INFORMATION
  Report Type: Report from Study
  Country: US (occurrence: US)
  Receive Date: 20251023
  Receipt Date: 20251023
  Transmission Date: 20260118
  Serious: Yes (Other)
  Sender: TEVA
  Company Number: US-TEVA-VS-3378959

PATIENT
  Age: 75 Year
  Sex: Female

DRUGS (1)
  1. AUSTEDO XR [Suspect]
     Active Substance: DEUTETRABENAZINE
     Indication: Product used for unknown indication
     Dosage: EVERY NIGHT
     Route: 065

REACTIONS (9)
  - Dyskinesia [Unknown]
  - Product dose omission issue [Unknown]
  - Balance disorder [Unknown]
  - Faeces soft [Unknown]
  - Productive cough [Unknown]
  - Insomnia [Unknown]
  - Product use issue [Unknown]
  - Bruxism [Unknown]
  - Dry mouth [Unknown]
